FAERS Safety Report 21014218 (Version 1)
Quarter: 2022Q2

REPORT INFORMATION
  Report Type: Report from Study
  Country: UY (occurrence: UY)
  Receive Date: 20220627
  Receipt Date: 20220627
  Transmission Date: 20220720
  Serious: Yes (Other)
  Sender: FDA-Public Use
  Company Number: UY-ABBVIE-22K-168-4446059-00

PATIENT
  Age: 54 Year
  Sex: Male

DRUGS (1)
  1. RINVOQ [Suspect]
     Active Substance: UPADACITINIB
     Indication: Rheumatoid arthritis
     Route: 048
     Dates: start: 20211215

REACTIONS (2)
  - Renal cyst [Unknown]
  - Spinal disorder [Unknown]

NARRATIVE: CASE EVENT DATE: 20220601
